FAERS Safety Report 12331362 (Version 6)
Quarter: 2016Q3

REPORT INFORMATION
  Report Type: Spontaneous
  Country: JP (occurrence: JP)
  Receive Date: 20160504
  Receipt Date: 20160722
  Transmission Date: 20161109
  Serious: Yes (Hospitalization)
  Sender: FDA-Public Use
  Company Number: JP-ALLERGAN-1655583US

PATIENT
  Age: 54 Year
  Sex: Male

DRUGS (7)
  1. DEPAKENE [Concomitant]
     Active Substance: VALPROIC ACID
     Dosage: 200 MG, BID
  2. OLMETEC [Concomitant]
     Active Substance: OLMESARTAN MEDOXOMIL
     Indication: HYPERTENSION
     Dosage: 10 MG, QD
     Dates: end: 20160426
  3. CILOSTAZOL OD [Concomitant]
     Active Substance: CILOSTAZOL
     Dosage: 50 MG, BID
  4. BOTOX [Suspect]
     Active Substance: ONABOTULINUMTOXINA
     Indication: MUSCLE SPASMS
     Dosage: 240 UNITS, SINGLE
     Route: 030
     Dates: start: 20160426, end: 20160426
  5. BOTOX [Suspect]
     Active Substance: ONABOTULINUMTOXINA
     Dosage: 240 UNITS, SINGLE
     Route: 030
     Dates: start: 20121030, end: 20121030
  6. BAYASPIRIN [Concomitant]
     Active Substance: ASPIRIN
  7. ISOPROPANOL [Concomitant]
     Active Substance: ISOPROPANOLAMINE
     Indication: PRODUCT USED FOR UNKNOWN INDICATION
     Dosage: UNK
     Dates: start: 20160426, end: 20160426

REACTIONS (5)
  - Anaphylactic shock [Recovered/Resolved]
  - Blood pressure decreased [Recovered/Resolved]
  - Yawning [Unknown]
  - Circulatory collapse [Recovered/Resolved]
  - Dizziness [Recovered/Resolved]

NARRATIVE: CASE EVENT DATE: 20160426
